FAERS Safety Report 19059081 (Version 1)
Quarter: 2021Q1

REPORT INFORMATION
  Report Type: Report from Study
  Country: US (occurrence: US)
  Receive Date: 20210325
  Receipt Date: 20210325
  Transmission Date: 20210420
  Serious: Yes (Hospitalization, Other)
  Sender: FDA-Public Use
  Company Number: US-JNJFOC-20210332522

PATIENT
  Age: 79 Year
  Sex: Male
  Weight: 94.1 kg

DRUGS (1)
  1. OPSUMIT [Suspect]
     Active Substance: MACITENTAN
     Indication: PULMONARY ARTERIAL HYPERTENSION
     Route: 048

REACTIONS (7)
  - Haemorrhage [Unknown]
  - Dyspnoea exertional [Unknown]
  - Head injury [Unknown]
  - Blood glucose decreased [Unknown]
  - Fall [Unknown]
  - Blood pressure abnormal [Unknown]
  - Syncope [Unknown]

NARRATIVE: CASE EVENT DATE: 20210308
